FAERS Safety Report 20335647 (Version 1)
Quarter: 2022Q1

REPORT INFORMATION
  Report Type: Spontaneous
  Country: FR (occurrence: FR)
  Receive Date: 20220114
  Receipt Date: 20220114
  Transmission Date: 20220423
  Serious: Yes (Hospitalization)
  Sender: FDA-Public Use
  Company Number: None

PATIENT
  Age: 80 Year
  Sex: Male
  Weight: 58.4 kg

DRUGS (28)
  1. CLINDAMYCIN HYDROCHLORIDE [Suspect]
     Active Substance: CLINDAMYCIN HYDROCHLORIDE
     Indication: Wound infection
     Dosage: 600 MG EVERY 6 HOURS
     Route: 048
     Dates: start: 20210817, end: 20210822
  2. CLINDAMYCIN HYDROCHLORIDE [Suspect]
     Active Substance: CLINDAMYCIN HYDROCHLORIDE
     Dosage: 600 MG EVERY 6 HOURS
     Route: 048
     Dates: start: 20210817, end: 20210825
  3. CLINDAMYCIN PHOSPHATE [Suspect]
     Active Substance: CLINDAMYCIN PHOSPHATE
     Indication: Wound infection
     Dosage: 600 MG, 2X/DAY (EVERY 12 HOURS)
     Route: 041
     Dates: start: 20210824, end: 20210830
  4. GABAPENTIN [Suspect]
     Active Substance: GABAPENTIN
     Dosage: 400 MG, 1X/DAY
     Dates: start: 20210817, end: 20210819
  5. GABAPENTIN [Suspect]
     Active Substance: GABAPENTIN
     Dosage: 100 MG, 1X/DAY
     Dates: start: 20210820, end: 20210820
  6. MOXIFLOXACIN [Suspect]
     Active Substance: MOXIFLOXACIN
     Indication: Wound infection
     Dosage: UNK
     Dates: start: 20210811, end: 20210819
  7. MORPHINE SULFATE [Suspect]
     Active Substance: MORPHINE SULFATE
     Dosage: 10 MG EVERY 12 HOURS
     Route: 048
     Dates: start: 20210814, end: 20210816
  8. MORPHINE SULFATE [Suspect]
     Active Substance: MORPHINE SULFATE
     Dosage: 20 MG IN THE MORNING, 10 MG IN THE EVENING
     Route: 048
     Dates: start: 20210816, end: 20210817
  9. MORPHINE SULFATE [Suspect]
     Active Substance: MORPHINE SULFATE
     Dosage: 10 MG, 1X/DAY
     Route: 048
     Dates: start: 20210817, end: 20210820
  10. DULOXETINE HYDROCHLORIDE [Suspect]
     Active Substance: DULOXETINE HYDROCHLORIDE
     Dosage: UNK
     Dates: start: 20210716, end: 20210817
  11. RIFAMPIN [Suspect]
     Active Substance: RIFAMPIN
     Indication: Wound infection
     Dosage: UNK
     Dates: start: 20210811, end: 20210817
  12. NEFOPAM HYDROCHLORIDE [Suspect]
     Active Substance: NEFOPAM HYDROCHLORIDE
     Dosage: UNK
     Dates: start: 20210814, end: 20210820
  13. ONDANSETRON [Concomitant]
     Active Substance: ONDANSETRON
     Dosage: 8 MG, 1X/DAY
     Route: 048
     Dates: start: 20210815, end: 20210830
  14. OXYCODONE HYDROCHLORIDE [Concomitant]
     Active Substance: OXYCODONE HYDROCHLORIDE
     Dosage: 1 MG, SINGLE
     Route: 041
     Dates: start: 20210820, end: 20210821
  15. OXYCODONE HYDROCHLORIDE [Concomitant]
     Active Substance: OXYCODONE HYDROCHLORIDE
     Dosage: 9.6 MG, SINGLE
     Route: 041
     Dates: start: 20210821, end: 20210822
  16. OXYCODONE HYDROCHLORIDE [Concomitant]
     Active Substance: OXYCODONE HYDROCHLORIDE
     Dosage: 14.4 MG, 1X/DAY
     Route: 041
     Dates: start: 20210822, end: 20210827
  17. OXYCODONE HYDROCHLORIDE [Concomitant]
     Active Substance: OXYCODONE HYDROCHLORIDE
     Dosage: 33.6 MG, 1X/DAY
     Route: 041
     Dates: start: 20210827, end: 20210831
  18. OXYCODONE HYDROCHLORIDE [Concomitant]
     Active Substance: OXYCODONE HYDROCHLORIDE
     Dosage: 38.4 MG, 1X/DAY
     Route: 041
     Dates: start: 20210831, end: 20210903
  19. OXYCODONE HYDROCHLORIDE [Concomitant]
     Active Substance: OXYCODONE HYDROCHLORIDE
     Dosage: 48 MG, 1X/DAY
     Route: 041
     Dates: start: 20210903, end: 20210906
  20. PIPERACILLIN SODIUM\TAZOBACTAM SODIUM [Concomitant]
     Active Substance: PIPERACILLIN SODIUM\TAZOBACTAM SODIUM
     Indication: Wound infection
     Dosage: 4 G EVERY 8 HOURS
     Route: 041
     Dates: start: 20210819, end: 20210830
  21. URAPIDIL [Concomitant]
     Active Substance: URAPIDIL
     Dosage: 60 MG, 1X/DAY (EXTENDED RELEASE FORM)
     Route: 048
     Dates: end: 20210822
  22. LERCANIDIPINE HYDROCHLORIDE [Concomitant]
     Active Substance: LERCANIDIPINE HYDROCHLORIDE
     Dosage: 20 MG, 1X/DAY
     Route: 048
     Dates: end: 20210822
  23. ASPIRIN [Concomitant]
     Active Substance: ASPIRIN
     Dosage: 100 MG, 1X/DAY
     Route: 048
     Dates: end: 20210822
  24. MIDAZOLAM [Concomitant]
     Active Substance: MIDAZOLAM
     Dosage: 2.4 MG, 1X/DAY
     Route: 041
     Dates: start: 20210821, end: 20210822
  25. MIDAZOLAM [Concomitant]
     Active Substance: MIDAZOLAM
     Dosage: 7 MG, 1X/DAY
     Route: 041
     Dates: start: 20210822, end: 20210827
  26. MIDAZOLAM [Concomitant]
     Active Substance: MIDAZOLAM
     Dosage: 9.4 MG, 1X/DAY
     Route: 041
     Dates: start: 20210827, end: 20210830
  27. MIDAZOLAM [Concomitant]
     Active Substance: MIDAZOLAM
     Dosage: 18.6 MG, 1X/DAY
     Route: 041
     Dates: start: 20210830, end: 20210902
  28. MIDAZOLAM [Concomitant]
     Active Substance: MIDAZOLAM
     Dosage: 24 MG, 1X/DAY
     Route: 041
     Dates: start: 20210902, end: 20210906

REACTIONS (1)
  - Cholestatic liver injury [Recovered/Resolved]

NARRATIVE: CASE EVENT DATE: 20210823
